FAERS Safety Report 5737918-3 (Version None)
Quarter: 2008Q2

REPORT INFORMATION
  Report Type: 
  Country: None (occurrence: None)
  Receive Date: 20080512
  Receipt Date: 20080512
  Transmission Date: 20081010
  Serious: No
  Sender: FDA-Public Use
  Company Number: None

PATIENT
  Sex: Female
  Weight: 52.1637 kg

DRUGS (1)
  1. COLGATE PRO HEALTH MOUTH RINSE [Suspect]

REACTIONS (2)
  - HYPOAESTHESIA ORAL [None]
  - TOOTH DISCOLOURATION [None]
